FAERS Safety Report 23488786 (Version 4)
Quarter: 2024Q4

REPORT INFORMATION
  Report Type: Report from Study
  Country: CN (occurrence: CN)
  Receive Date: 20240206
  Receipt Date: 20241226
  Transmission Date: 20250114
  Serious: Yes (Hospitalization, Other)
  Sender: ROCHE
  Company Number: CN-ROCHE-3502194

PATIENT
  Age: 56 Year
  Sex: Female

DRUGS (6)
  1. POLATUZUMAB VEDOTIN [Suspect]
     Active Substance: POLATUZUMAB VEDOTIN
     Indication: Diffuse large B-cell lymphoma
     Dosage: MOST RECENT DATE OF POLATUZUMAB PRIOR TO DECREASED PLATELET COUNT ONSET WAS 18/DEC/2023 WAS 120MG IV
     Route: 042
     Dates: start: 20231124
  2. GEMCITABINE [Suspect]
     Active Substance: GEMCITABINE
     Indication: Diffuse large B-cell lymphoma
     Route: 065
  3. INVESTIGATIONAL PRODUCT [Suspect]
     Active Substance: INVESTIGATIONAL PRODUCT
     Indication: Diffuse large B-cell lymphoma
     Route: 065
  4. OXALIPLATIN [Suspect]
     Active Substance: OXALIPLATIN
     Indication: Diffuse large B-cell lymphoma
     Route: 065
  5. Recombinant Human Granulocyte Colony Stimulating [Concomitant]
     Route: 058
     Dates: start: 20240226, end: 20240226
  6. Recombinant Human Granulocyte Colony Stimulating [Concomitant]
     Route: 058
     Dates: start: 20240223, end: 20240226

REACTIONS (6)
  - Platelet count decreased [Not Recovered/Not Resolved]
  - Leukopenia [Recovered/Resolved]
  - Neutrophil count decreased [Recovered/Resolved]
  - Lymphocyte count decreased [Recovered/Resolved]
  - Anaemia [Not Recovered/Not Resolved]
  - Hyperuricaemia [Recovered/Resolved]

NARRATIVE: CASE EVENT DATE: 20231125
